FAERS Safety Report 11402067 (Version 1)
Quarter: 2015Q3

REPORT INFORMATION
  Report Type: Spontaneous
  Country: US (occurrence: None)
  Receive Date: 20150819
  Receipt Date: 20150819
  Transmission Date: 20151125
  Serious: Yes (Hospitalization)
  Sender: FDA-Public Use
  Company Number: None

PATIENT
  Age: 53 Year
  Sex: Female
  Weight: 102 kg

DRUGS (5)
  1. MULTIVITAMIN [Concomitant]
     Active Substance: VITAMINS
  2. HYDROCODONE/APAP [Concomitant]
     Active Substance: ACETAMINOPHEN\HYDROCODONE BITARTRATE
  3. ASPIRIN. [Concomitant]
     Active Substance: ASPIRIN
  4. ANASTROZOLE. [Concomitant]
     Active Substance: ANASTROZOLE
  5. BACTRIM DS [Suspect]
     Active Substance: SULFAMETHOXAZOLE\TRIMETHOPRIM
     Indication: ABSCESS
     Dosage: 1 TABLET
     Route: 048
     Dates: start: 20150810, end: 20150815

REACTIONS (6)
  - Hepatitis [None]
  - Gastroenteritis [None]
  - Hyperpyrexia [None]
  - Leukopenia [None]
  - Diarrhoea [None]
  - Thrombocytopenia [None]

NARRATIVE: CASE EVENT DATE: 20150815
